FAERS Safety Report 11697361 (Version 1)
Quarter: 2015Q4

REPORT INFORMATION
  Report Type: Report from Study
  Country: AU (occurrence: AU)
  Receive Date: 20151104
  Receipt Date: 20151104
  Transmission Date: 20160304
  Serious: Yes (Other)
  Sender: FDA-Public Use
  Company Number: AU-REGENERON PHARMACEUTICALS, INC.-2015-13502

PATIENT

DRUGS (3)
  1. EYLEA [Suspect]
     Active Substance: AFLIBERCEPT
     Indication: NEOVASCULAR AGE-RELATED MACULAR DEGENERATION
     Dosage: 2 MG MILLIGRAM(S), Q2WEEKS
     Route: 031
     Dates: start: 201504
  2. LUCENTIS [Concomitant]
     Active Substance: RANIBIZUMAB
     Dosage: UNK, EVERY ALTERNATE WEEK
     Route: 031
  3. AVASTIN [Concomitant]
     Active Substance: BEVACIZUMAB
     Dosage: UNK, EVERY ALTERNATE WEEK
     Route: 031

REACTIONS (3)
  - Eye haemorrhage [Unknown]
  - Muscle twitching [Unknown]
  - Off label use [Unknown]

NARRATIVE: CASE EVENT DATE: 201510
